FAERS Safety Report 6304579-4 (Version None)
Quarter: 2009Q3

REPORT INFORMATION
  Report Type: 
  Country: None (occurrence: None)
  Receive Date: 20090811
  Receipt Date: 20090804
  Transmission Date: 20100115
  Serious: Yes (Hospitalization, Other)
  Sender: FDA-Public Use
  Company Number: CA-ABBOTT-09P-028-0585388-00

PATIENT
  Sex: Female
  Weight: 50.848 kg

DRUGS (10)
  1. HUMIRA [Suspect]
     Indication: PSORIASIS
     Route: 058
     Dates: start: 20080814, end: 20090213
  2. HUMIRA [Suspect]
     Dates: start: 20080801, end: 20090301
  3. TYLENOL (CAPLET) [Concomitant]
     Indication: DRUG USE FOR UNKNOWN INDICATION
  4. ALLERGY PILLS [Concomitant]
     Indication: DRUG USE FOR UNKNOWN INDICATION
  5. CALTRATE [Concomitant]
     Indication: DRUG USE FOR UNKNOWN INDICATION
  6. ARTHROTEC [Concomitant]
     Indication: DRUG USE FOR UNKNOWN INDICATION
  7. METHOTREXATE [Concomitant]
     Indication: DRUG USE FOR UNKNOWN INDICATION
     Dates: start: 20011101, end: 20031101
  8. METHOTREXATE [Concomitant]
     Dates: start: 20070801, end: 20081201
  9. NEORAL [Concomitant]
     Indication: DRUG USE FOR UNKNOWN INDICATION
     Dates: start: 20050801, end: 20060501
  10. ENBREL [Concomitant]
     Indication: DRUG USE FOR UNKNOWN INDICATION
     Dates: start: 20060627, end: 20080810

REACTIONS (3)
  - ABDOMINAL PAIN UPPER [None]
  - GASTRIC CANCER [None]
  - NEOPLASM MALIGNANT [None]
